FAERS Safety Report 22254708 (Version 1)
Quarter: 2023Q2

REPORT INFORMATION
  Report Type: Spontaneous
  Country: US (occurrence: None)
  Receive Date: 20230424
  Receipt Date: 20230424
  Transmission Date: 20230721
  Serious: Yes (unspecified)
  Sender: FDA-Public Use
  Company Number: None

PATIENT
  Age: 39 Year
  Sex: Female
  Weight: 74.84 kg

DRUGS (4)
  1. QUETIAPINE [Suspect]
     Active Substance: QUETIAPINE
     Dosage: FREQUENCY : ONCE;?
     Route: 048
     Dates: start: 20230421, end: 20230421
  2. BUSPIRONE [Concomitant]
  3. DULOXETINE [Concomitant]
  4. LURASIDONE [Concomitant]

REACTIONS (3)
  - Drug hypersensitivity [None]
  - Rash [None]
  - Therapy cessation [None]

NARRATIVE: CASE EVENT DATE: 20230421
